FAERS Safety Report 17482522 (Version 3)
Quarter: 2020Q3

REPORT INFORMATION
  Report Type: Report from Study
  Country: US (occurrence: US)
  Receive Date: 20200302
  Receipt Date: 20200703
  Transmission Date: 20201102
  Serious: Yes (Other)
  Sender: FDA-Public Use
  Company Number: NVSC2020US056618

PATIENT
  Age: 8 Year
  Sex: Male
  Weight: 22.7 kg

DRUGS (2)
  1. ILARIS [Suspect]
     Active Substance: CANAKINUMAB
     Indication: STILL^S DISEASE
     Dosage: 80 MG, Q4W
     Route: 058
  2. ILARIS [Suspect]
     Active Substance: CANAKINUMAB
     Dosage: 100 MG, Q4W
     Route: 058

REACTIONS (2)
  - Condition aggravated [Recovering/Resolving]
  - Still^s disease [Recovering/Resolving]

NARRATIVE: CASE EVENT DATE: 20200218
